FAERS Safety Report 21088010 (Version 1)
Quarter: 2022Q3

REPORT INFORMATION
  Report Type: Spontaneous
  Country: CN (occurrence: CN)
  Receive Date: 20220715
  Receipt Date: 20220715
  Transmission Date: 20221027
  Serious: Yes (Other)
  Sender: FDA-Public Use
  Company Number: None

PATIENT
  Age: 50 Year
  Sex: Female
  Weight: 53.3 kg

DRUGS (4)
  1. CYCLOPHOSPHAMIDE [Suspect]
     Active Substance: CYCLOPHOSPHAMIDE
     Indication: Breast cancer female
     Dosage: 890 MG, QD, POWDER INJECTION (ENDOXAN CTX 890 MG DILUTED NS 45ML)
     Route: 042
     Dates: start: 20220518, end: 20220518
  2. SODIUM CHLORIDE [Suspect]
     Active Substance: SODIUM CHLORIDE
     Indication: Medication dilution
     Dosage: 45 ML, QD (ENDOXAN CTX 890 MG DILUTED NS 45ML)
     Route: 042
     Dates: start: 20220518, end: 20220518
  3. SODIUM CHLORIDE [Suspect]
     Active Substance: SODIUM CHLORIDE
     Dosage: 100 ML, QD (PHARMORUBICINE 120 MG DILUTED WITH NS 100ML)
     Route: 041
     Dates: start: 20220518, end: 20220518
  4. EPIRUBICIN [Suspect]
     Active Substance: EPIRUBICIN
     Indication: Breast cancer female
     Dosage: 120 MG, QD (PHARMORUBICINE 120 MG DILUTED WITH NS 100ML)
     Route: 041
     Dates: start: 20220518, end: 20220518

REACTIONS (2)
  - White blood cell count decreased [Recovered/Resolved]
  - Agranulocytosis [Recovered/Resolved]

NARRATIVE: CASE EVENT DATE: 20220527
